FAERS Safety Report 7171398-9 (Version None)
Quarter: 2010Q4

REPORT INFORMATION
  Report Type: 
  Country: None (occurrence: None)
  Receive Date: 20101217
  Receipt Date: 20101209
  Transmission Date: 20110411
  Serious: Yes (Other)
  Sender: FDA-Public Use
  Company Number: US-PFIZER INC-2010168433

PATIENT
  Sex: Female

DRUGS (7)
  1. PRISTIQ [Suspect]
     Indication: DEPRESSION
     Dosage: 100 MG, 1X/DAY
     Route: 048
     Dates: start: 20091001
  2. LORTAB [Concomitant]
     Indication: PAIN
     Dosage: 10 MG, 2X/DAY
     Dates: start: 20000301
  3. METHADONE [Concomitant]
     Indication: PAIN
     Dosage: 10 MG, 2X/DAY
     Dates: start: 20000301
  4. XANAX [Concomitant]
     Indication: ANXIETY DISORDER
     Dosage: 2 MG, 4X/DAY
     Route: 048
     Dates: start: 20000301
  5. ZYPREXA [Concomitant]
     Indication: POST-TRAUMATIC STRESS DISORDER
     Dosage: 20 MG, 1X/DAY
     Dates: start: 20000301
  6. ZYPREXA [Concomitant]
     Indication: DEPRESSION
  7. ADDERALL 10 [Concomitant]
     Indication: FATIGUE
     Dosage: 10 MG, 3X/DAY

REACTIONS (2)
  - INCREASED APPETITE [None]
  - WEIGHT INCREASED [None]
